FAERS Safety Report 12541747 (Version 2)
Quarter: 2016Q3

REPORT INFORMATION
  Report Type: Other
  Country: FR (occurrence: FR)
  Receive Date: 20160708
  Receipt Date: 20160817
  Transmission Date: 20161109
  Serious: Yes (Hospitalization)
  Sender: FDA-Public Use
  Company Number: FR-HQ SPECIALTY-FR-2016INT000475

PATIENT
  Age: 4 Year
  Sex: Male

DRUGS (9)
  1. XALUPRINE [Suspect]
     Active Substance: MERCAPTOPURINE
     Indication: ACUTE LYMPHOCYTIC LEUKAEMIA
     Dosage: 20 MG/ML (56 MG,1 D)
     Route: 048
     Dates: start: 20160319
  2. XALUPRINE [Suspect]
     Active Substance: MERCAPTOPURINE
     Dosage: 20 MG/ML (66 MG,1 D)
     Route: 048
     Dates: start: 20160525, end: 20160531
  3. TAZOCILLINE [Suspect]
     Active Substance: PIPERACILLIN SODIUM\TAZOBACTAM SODIUM
     Indication: ANTIBIOTIC THERAPY
     Dosage: 2.8, UNK
     Route: 042
     Dates: start: 20160531, end: 20160602
  4. VENTOLINE [Concomitant]
     Active Substance: ALBUTEROL
     Indication: PRODUCT USED FOR UNKNOWN INDICATION
     Dosage: UNK, AS NECESSARY (INHALATION)
     Route: 055
  5. METHOTREXATE SODIUM. [Suspect]
     Active Substance: METHOTREXATE SODIUM
     Indication: ACUTE LYMPHOCYTIC LEUKAEMIA
     Dosage: STRENGTH: 10 MG (20 MG,1 IN 1 W)
     Route: 048
     Dates: start: 20160319
  6. METHOTREXATE SODIUM. [Suspect]
     Active Substance: METHOTREXATE SODIUM
     Dosage: STRENGTH: 10 MG (25 MG,1 IN 1 W)
     Route: 048
     Dates: start: 20160525, end: 20160526
  7. FLIXOTIDE [Concomitant]
     Active Substance: FLUTICASONE PROPIONATE
     Indication: PRODUCT USED FOR UNKNOWN INDICATION
     Dosage: 100 UG (50 ?G, 2 IN 1 D)
     Route: 065
  8. BACTRIM [Concomitant]
     Active Substance: SULFAMETHOXAZOLE\TRIMETHOPRIM
     Indication: PRODUCT USED FOR UNKNOWN INDICATION
     Dosage: 171.4286 MG (400 MG,3 IN 1 W)
     Route: 065
  9. CIFLOX [Suspect]
     Active Substance: CIPROFLOXACIN
     Indication: ANTIBIOTIC THERAPY
     Dosage: 400 MG; 200 MG, 2 IN 1 D
     Route: 048
     Dates: start: 20160531, end: 20160603

REACTIONS (8)
  - Hepatocellular injury [Recovered/Resolved]
  - Productive cough [Unknown]
  - Lung disorder [Unknown]
  - Toxicity to various agents [Unknown]
  - Rales [Unknown]
  - Drug administered to patient of inappropriate age [Unknown]
  - Product use issue [Unknown]
  - Febrile bone marrow aplasia [Recovered/Resolved]

NARRATIVE: CASE EVENT DATE: 20160319
